FAERS Safety Report 8018307-8 (Version None)
Quarter: 2012Q1

REPORT INFORMATION
  Report Type: 
  Country: None (occurrence: None)
  Receive Date: 20120103
  Receipt Date: 20111229
  Transmission Date: 20120608
  Serious: Yes (Other)
  Sender: FDA-Public Use
  Company Number: US-JNJFOC-20111212703

PATIENT
  Sex: Female

DRUGS (3)
  1. DOXORUBICIN HCL [Suspect]
     Indication: OVARIAN CANCER
     Route: 042
  2. DOXORUBICIN HCL [Suspect]
     Route: 042
     Dates: start: 20111003
  3. PROCRIT [Suspect]
     Indication: ANAEMIA OF MALIGNANT DISEASE
     Route: 058

REACTIONS (4)
  - ANAEMIA [None]
  - MALAISE [None]
  - CHEST DISCOMFORT [None]
  - MUSCLE TIGHTNESS [None]
